FAERS Safety Report 5996129-7 (Version None)
Quarter: 2008Q4

REPORT INFORMATION
  Report Type: 
  Country: None (occurrence: None)
  Receive Date: 20081212
  Receipt Date: 20081008
  Transmission Date: 20090506
  Serious: No
  Sender: FDA-Public Use
  Company Number: US-ABBOTT-08P-163-0480758-00

PATIENT
  Sex: Female

DRUGS (5)
  1. HUMIRA [Suspect]
     Indication: JUVENILE ARTHRITIS
     Route: 058
     Dates: start: 20080301
  2. METHOTREXATE [Concomitant]
     Indication: RHEUMATOID ARTHRITIS
     Route: 048
     Dates: start: 20080201
  3. FOLIC ACID [Concomitant]
     Indication: VITAMIN SUPPLEMENTATION
     Dosage: ONE DAILY
     Route: 048
     Dates: start: 20080201
  4. NORETHINDRONE ACETATE [Concomitant]
     Indication: CONTRACEPTION
     Dosage: ONE DAILY
     Route: 048
     Dates: start: 20070801
  5. IBUPROFEN [Concomitant]
     Indication: ARTHRALGIA
     Route: 048

REACTIONS (7)
  - INJECTION SITE ERYTHEMA [None]
  - INJECTION SITE HAEMATOMA [None]
  - INJECTION SITE IRRITATION [None]
  - INJECTION SITE PAIN [None]
  - INJECTION SITE PRURITUS [None]
  - INJECTION SITE URTICARIA [None]
  - INJECTION SITE WARMTH [None]
